FAERS Safety Report 7629318-6 (Version None)
Quarter: 2011Q3

REPORT INFORMATION
  Report Type: 
  Country: None (occurrence: None)
  Receive Date: 20110722
  Receipt Date: 20110713
  Transmission Date: 20111222
  Serious: Yes (Hospitalization)
  Sender: FDA-Public Use
  Company Number: US-US-EMD SERONO, INC.-7051397

PATIENT
  Sex: Male

DRUGS (4)
  1. REBIF [Suspect]
     Route: 058
  2. TRAMADOL HCL [Concomitant]
     Indication: PREMEDICATION
  3. TYLENOL-500 [Concomitant]
     Indication: PREMEDICATION
  4. REBIF [Suspect]
     Indication: NEUROMYELITIS OPTICA
     Route: 058
     Dates: start: 20110317

REACTIONS (3)
  - BALANCE DISORDER [None]
  - NEUROMYELITIS OPTICA [None]
  - BACK PAIN [None]
